FAERS Safety Report 6911367-4 (Version None)
Quarter: 2010Q3

REPORT INFORMATION
  Report Type: 
  Country: None (occurrence: None)
  Receive Date: 20100806
  Receipt Date: 20100729
  Transmission Date: 20110219
  Serious: Yes (Other)
  Sender: FDA-Public Use
  Company Number: RS-JNJFOC-20100504338

PATIENT
  Age: 34 Year
  Sex: Female

DRUGS (2)
  1. RISPOLEPT CONSTA [Suspect]
     Indication: SCHIZOPHRENIA
     Route: 030
  2. GLUFORMIN [Concomitant]
     Indication: DIABETES MELLITUS
     Route: 065

REACTIONS (3)
  - AMENORRHOEA [None]
  - BLOOD TESTOSTERONE DECREASED [None]
  - HYPERPROLACTINAEMIA [None]
